APPROVED DRUG PRODUCT: TRIMIPRAMINE MALEATE
Active Ingredient: TRIMIPRAMINE MALEATE
Strength: EQ 50MG BASE
Dosage Form/Route: CAPSULE;ORAL
Application: A077361 | Product #002 | TE Code: AB
Applicant: ELITE LABORATORIES INC
Approved: Aug 2, 2006 | RLD: No | RS: No | Type: RX